FAERS Safety Report 7381725-5 (Version None)
Quarter: 2011Q1

REPORT INFORMATION
  Report Type: 
  Country: None (occurrence: None)
  Receive Date: 20110329
  Receipt Date: 20101021
  Transmission Date: 20110831
  Serious: Yes (Other)
  Sender: FDA-Public Use
  Company Number: US-BAYER-200937064NA

PATIENT
  Sex: Female

DRUGS (10)
  1. SIMVASTATIN [Concomitant]
     Dosage: 10 MG, QD
     Route: 048
  2. LEVONORGESTREL + ETHINYL ESTRADIOL [Concomitant]
  3. LEVONORGESTREL + ETHINYL ESTRADIOL [Concomitant]
     Dosage: UNK
     Dates: start: 20080624
  4. TOPAMAX [Concomitant]
     Dosage: UNK UNK, QD
     Route: 048
  5. METFORMIN HCL [Concomitant]
     Dosage: 500 MG, QD
     Route: 048
  6. EFFEXOR XR [Concomitant]
     Dosage: 150 MG, UNK
     Route: 048
  7. YAZ [Suspect]
     Indication: PRODUCT USED FOR UNKNOWN INDICATION
     Route: 048
     Dates: start: 20070101, end: 20090101
  8. YASMIN [Suspect]
     Indication: PRODUCT USED FOR UNKNOWN INDICATION
  9. CLONAZEPAM [Concomitant]
     Dosage: 1 MG, TID
     Route: 048
  10. LOW-OGESTREL [Concomitant]
     Dosage: UNK
     Dates: start: 20090401

REACTIONS (4)
  - CHOLECYSTECTOMY [None]
  - CHOLECYSTITIS CHRONIC [None]
  - GALLBLADDER CHOLESTEROLOSIS [None]
  - INJURY [None]
